FAERS Safety Report 6527309-X (Version None)
Quarter: 2010Q1

REPORT INFORMATION
  Report Type: 
  Country: None (occurrence: None)
  Receive Date: 20100105
  Receipt Date: 20090730
  Transmission Date: 20100710
  Serious: No
  Sender: FDA-Public Use
  Company Number: US-TYCO HEALTHCARE/MALLINCKRODT-T200901456

PATIENT
  Sex: Male
  Weight: 72.562 kg

DRUGS (2)
  1. OPTIMARK [Suspect]
     Indication: NUCLEAR MAGNETIC RESONANCE IMAGING BRAIN
     Dosage: 15 ML, SINGLE
     Route: 042
  2. OPTIMARK [Suspect]
     Dosage: 15 ML, SINGLE
     Route: 042

REACTIONS (1)
  - DRUG INEFFECTIVE [None]
